FAERS Safety Report 4770971-2 (Version None)
Quarter: 2005Q3

REPORT INFORMATION
  Report Type: 
  Country: None (occurrence: None)
  Receive Date: 20050914
  Receipt Date: 20050824
  Transmission Date: 20060218
  Serious: Yes (Other)
  Sender: FDA-Public Use
  Company Number: JP_050707165

PATIENT
  Age: 72 Year
  Sex: Female
  Weight: 59 kg

DRUGS (5)
  1. EVISTA [Suspect]
     Indication: OSTEOPOROSIS
     Dosage: 60 MG/1 DAY
     Dates: start: 20040611, end: 20050703
  2. D ALFA (ALFACALCIDOL) [Concomitant]
  3. PIETENALE (TICLOPIDINE HYDROCHLORIDE) [Concomitant]
  4. ASPARA-CA (ASPARTATE CALCIUM) [Concomitant]
  5. NORVASC [Concomitant]

REACTIONS (4)
  - ANOREXIA [None]
  - CEREBRAL INFARCTION [None]
  - CONDITION AGGRAVATED [None]
  - TRANSVERSE SINUS THROMBOSIS [None]
